FAERS Safety Report 5744825-9 (Version None)
Quarter: 2008Q2

REPORT INFORMATION
  Report Type: 
  Country: None (occurrence: None)
  Receive Date: 20080520
  Receipt Date: 20080508
  Transmission Date: 20081010
  Serious: Yes (Other)
  Sender: FDA-Public Use
  Company Number: US-PFIZER INC-2008041170

PATIENT
  Sex: Female
  Weight: 90.7 kg

DRUGS (11)
  1. LYRICA [Suspect]
     Indication: FIBROMYALGIA
     Dates: start: 20080301, end: 20080503
  2. BUPROPION HCL [Concomitant]
  3. ESTRADIOL [Concomitant]
  4. ESTAZOLAM [Concomitant]
  5. TOPAMAX [Concomitant]
  6. AVANDIA [Concomitant]
  7. PRILOSEC [Concomitant]
  8. CLONAZEPAM [Concomitant]
  9. SEROQUEL [Concomitant]
  10. IBUPROFEN [Concomitant]
  11. LORTAB [Concomitant]
     Indication: RHEUMATOID ARTHRITIS

REACTIONS (15)
  - ABDOMINAL PAIN UPPER [None]
  - ACTIVITIES OF DAILY LIVING IMPAIRED [None]
  - BACK PAIN [None]
  - BALANCE DISORDER [None]
  - DIARRHOEA [None]
  - FALL [None]
  - FATIGUE [None]
  - FEELING ABNORMAL [None]
  - HEADACHE [None]
  - INCREASED APPETITE [None]
  - MALAISE [None]
  - NAUSEA [None]
  - OEDEMA PERIPHERAL [None]
  - PAIN [None]
  - SOMNOLENCE [None]
